FAERS Safety Report 8908248 (Version 4)
Quarter: 2013Q4

REPORT INFORMATION
  Report Type: Report from Study
  Country: CA (occurrence: CA)
  Receive Date: 20121114
  Receipt Date: 20131020
  Transmission Date: 20140711
  Serious: Yes (Death, Hospitalization)
  Sender: FDA-Public Use
  Company Number: PHHY2012CA104726

PATIENT
  Age: 81 Year
  Sex: Female

DRUGS (2)
  1. ACLASTA [Suspect]
     Indication: OSTEOPOROSIS
     Dosage: 5 MG/100 ML ONCE YEAR
     Route: 042
     Dates: start: 20111003
  2. ACLASTA [Suspect]
     Dosage: 5 MG/100 ML ONCE YEAR
     Route: 042
     Dates: start: 20121129

REACTIONS (2)
  - Death [Fatal]
  - Respiratory distress [Unknown]
